FAERS Safety Report 5519212-9 (Version None)
Quarter: 2007Q4

REPORT INFORMATION
  Report Type: 
  Country: None (occurrence: None)
  Receive Date: 20071114
  Receipt Date: 20071114
  Transmission Date: 20080405
  Serious: No
  Sender: FDA-Public Use
  Company Number: None

PATIENT
  Age: 77 Year
  Sex: Male
  Weight: 89.3586 kg

DRUGS (1)
  1. LEVITRA [Suspect]
     Indication: ERECTILE DYSFUNCTION
     Dosage: 1/2 TAB 1 HOUR BEFORE SEX PRN
     Dates: start: 20071016, end: 20071108

REACTIONS (2)
  - DEAFNESS TRANSITORY [None]
  - DEAFNESS UNILATERAL [None]
